FAERS Safety Report 8838352 (Version 1)
Quarter: 2012Q4

REPORT INFORMATION
  Report Type: 
  Country: DE (occurrence: DE)
  Receive Date: 20121012
  Receipt Date: 20121012
  Transmission Date: 20130627
  Serious: Yes (Other)
  Sender: FDA-Public Use
  Company Number: DE-GLAXOSMITHKLINE-D0077290A

PATIENT
  Age: 30 Year
  Sex: Female

DRUGS (4)
  1. LAMICTAL [Suspect]
     Indication: EPILEPSY
     Dosage: 300MG Twice per day
     Route: 048
     Dates: start: 20100225, end: 20101029
  2. KEPPRA [Suspect]
     Indication: EPILEPSY
     Dosage: 1500MG Twice per day
     Route: 048
     Dates: start: 20100225, end: 20101029
  3. CLOZAPINE [Suspect]
     Indication: SCHIZOPHRENIA
     Dosage: 500MG per day
     Route: 048
     Dates: start: 20100225, end: 20101029
  4. NASIVIN [Concomitant]
     Indication: NASOPHARYNGITIS
     Route: 045

REACTIONS (4)
  - Polyhydramnios [Recovered/Resolved]
  - Placental insufficiency [Unknown]
  - Exposure during pregnancy [Unknown]
  - Live birth [Unknown]
